FAERS Safety Report 23266357 (Version 2)
Quarter: 2024Q1

REPORT INFORMATION
  Report Type: Spontaneous
  Country: US (occurrence: US)
  Receive Date: 20231206
  Receipt Date: 20240112
  Transmission Date: 20240410
  Serious: Yes (Other)
  Sender: FDA-Public Use
  Company Number: US-SA-SAC20231204001129

PATIENT
  Sex: Male
  Weight: 104 kg

DRUGS (1)
  1. DUPIXENT [Suspect]
     Active Substance: DUPILUMAB
     Indication: Sinusitis
     Dosage: 300 MG, QOW
     Route: 058
     Dates: end: 202312

REACTIONS (3)
  - Bell^s palsy [Recovered/Resolved]
  - Infection [Unknown]
  - Product use in unapproved indication [Unknown]
